FAERS Safety Report 20531893 (Version 3)
Quarter: 2022Q2

REPORT INFORMATION
  Report Type: Spontaneous
  Country: US (occurrence: US)
  Receive Date: 20220301
  Receipt Date: 20220427
  Transmission Date: 20220720
  Serious: Yes (Other)
  Sender: FDA-Public Use
  Company Number: US-Accord-255655

PATIENT
  Age: 64 Year
  Sex: Female
  Weight: 77 kg

DRUGS (9)
  1. DOCETAXEL [Suspect]
     Active Substance: DOCETAXEL
     Indication: Breast cancer in situ
     Dosage: TOTAL OF 4 CYCLES, DOCETAXEL 135 MG
     Route: 042
     Dates: start: 20110103
  2. CYCLOPHOSPHAMIDE [Concomitant]
     Active Substance: CYCLOPHOSPHAMIDE
     Indication: Breast cancer
     Dosage: TOTAL OF 4 CYCLES.
     Dates: start: 20110103
  3. FEMARA [Concomitant]
     Active Substance: LETROZOLE
  4. PERCOCET [Concomitant]
     Active Substance: ACETAMINOPHEN\OXYCODONE HYDROCHLORIDE
  5. METANX [Concomitant]
     Active Substance: LEVOMEFOLATE CALCIUM\METHYLCOBALAMIN\PYRIDOXAL PHOSPHATE ANHYDROUS
  6. PRILOSEC [Concomitant]
     Active Substance: OMEPRAZOLE MAGNESIUM
  7. LEVBID [Concomitant]
     Active Substance: HYOSCYAMINE SULFATE
  8. ARANESP [Concomitant]
     Active Substance: DARBEPOETIN ALFA
     Indication: Prophylaxis
     Dosage: AFTER HER 1ST AND 4TH CYCLE
     Dates: start: 2017
  9. LEUCINE [Concomitant]
     Active Substance: LEUCINE

REACTIONS (4)
  - Leukopenia [Recovered/Resolved]
  - Anaemia [Recovered/Resolved]
  - Neuropathy peripheral [Recovered/Resolved]
  - Drug-genetic interaction [Unknown]
